FAERS Safety Report 7482078-4 (Version None)
Quarter: 2011Q2

REPORT INFORMATION
  Report Type: 
  Country: None (occurrence: None)
  Receive Date: 20110516
  Receipt Date: 20110505
  Transmission Date: 20111010
  Serious: Yes (Hospitalization, Other)
  Sender: FDA-Public Use
  Company Number: PHHY2011BR38795

PATIENT
  Sex: Female

DRUGS (3)
  1. HYGROTON [Concomitant]
     Indication: HYPERTENSION
     Dosage: 12.5 MG, UNK
     Route: 048
  2. NAPRIX [Concomitant]
     Indication: HYPERTENSION
     Dosage: UNK UKN, UNK
     Route: 048
  3. ALLOPURINOL [Suspect]
     Indication: HYPERURICOSURIA
     Dosage: 300 MG, QD
     Route: 048
     Dates: start: 20110303

REACTIONS (4)
  - CONJUNCTIVITIS [None]
  - BLOOD GLUCOSE INCREASED [None]
  - STEVENS-JOHNSON SYNDROME [None]
  - PRURITUS GENERALISED [None]
